FAERS Safety Report 5307515-2 (Version None)
Quarter: 2007Q2

REPORT INFORMATION
  Report Type: 
  Country: None (occurrence: None)
  Receive Date: 20070425
  Receipt Date: 20070412
  Transmission Date: 20071010
  Serious: No
  Sender: FDA-Public Use
  Company Number: US-ELI_LILLY_AND_COMPANY-US200704002879

PATIENT
  Age: 71 Year
  Sex: Female

DRUGS (10)
  1. CYMBALTA [Suspect]
     Indication: DEPRESSION
     Dosage: 30 MG, DAILY (1/D)
     Route: 048
     Dates: start: 20070402
  2. VERAPAMIL [Concomitant]
  3. SYNTHROID [Concomitant]
     Indication: HYPOTHYROIDISM
  4. CYTOMEL [Concomitant]
     Indication: HYPOTHYROIDISM
  5. PREMARIN [Concomitant]
     Indication: HORMONE REPLACEMENT THERAPY
     Dosage: UNK, QOD
  6. XANAX [Concomitant]
     Indication: ANXIETY
     Dosage: UNK, AS NEEDED
  7. HALCION [Concomitant]
     Indication: ANXIETY
     Dosage: UNK, AS NEEDED
  8. IBUPROFEN [Concomitant]
     Dosage: 1600 MG, UNK
     Dates: end: 20060901
  9. IBUPROFEN [Concomitant]
     Dosage: 1200 MG, UNK
     Dates: start: 20060901, end: 20070402
  10. PROZAC [Suspect]
     Indication: DEPRESSION
     Route: 048
     Dates: start: 19820101, end: 19820101

REACTIONS (6)
  - ANOREXIA [None]
  - HEPATIC ENZYME INCREASED [None]
  - LYMPHADENOPATHY [None]
  - MALAISE [None]
  - PANCREATIC ENLARGEMENT [None]
  - SUICIDAL IDEATION [None]
